FAERS Safety Report 19074084 (Version 1)
Quarter: 2021Q1

REPORT INFORMATION
  Report Type: Spontaneous
  Country: US (occurrence: US)
  Receive Date: 20210330
  Receipt Date: 20210330
  Transmission Date: 20210420
  Serious: Yes (Other)
  Sender: FDA-Public Use
  Company Number: US-PFIZER INC-2021304593

PATIENT
  Age: 84 Year
  Sex: Female
  Weight: 56.7 kg

DRUGS (1)
  1. TOVIAZ [Suspect]
     Active Substance: FESOTERODINE FUMARATE
     Dosage: UNK
     Dates: end: 202101

REACTIONS (2)
  - Mental impairment [Unknown]
  - Hyperhidrosis [Unknown]
